FAERS Safety Report 17852410 (Version 1)
Quarter: 2020Q2

REPORT INFORMATION
  Report Type: Report from Study
  Country: US (occurrence: US)
  Receive Date: 20200602
  Receipt Date: 20200602
  Transmission Date: 20200714
  Serious: Yes (Other)
  Sender: FDA-Public Use
  Company Number: US-MYLANLABS-2018M1083026

PATIENT
  Age: 32 Year
  Sex: Female
  Weight: 90.7 kg

DRUGS (1)
  1. GLATIRAMER ACETATE INJECTION [Suspect]
     Active Substance: GLATIRAMER ACETATE
     Indication: RELAPSING-REMITTING MULTIPLE SCLEROSIS
     Dosage: 40 MG, Q3W
     Route: 058
     Dates: start: 20180331

REACTIONS (9)
  - Heart rate increased [Unknown]
  - Dizziness [Unknown]
  - Heart rate decreased [Unknown]
  - Back pain [Unknown]
  - Maternal exposure during pregnancy [Unknown]
  - Injection site pain [Unknown]
  - Multiple sclerosis [Unknown]
  - Flushing [Unknown]
  - Dyspnoea [Unknown]

NARRATIVE: CASE EVENT DATE: 20181028
